FAERS Safety Report 8590397-3 (Version None)
Quarter: 2012Q3

REPORT INFORMATION
  Report Type: 
  Country: None (occurrence: None)
  Receive Date: 20120813
  Receipt Date: 20120809
  Transmission Date: 20120928
  Serious: Yes (Hospitalization)
  Sender: FDA-Public Use
  Company Number: DE-ROCHE-1100040

PATIENT
  Age: 43 Year
  Sex: Male
  Weight: 75 kg

DRUGS (4)
  1. COPEGUS [Suspect]
     Indication: HEPATITIS C
     Dosage: LAST DOSE PRIOR TO EVENT WAS ON 1/APR/2012
     Route: 048
     Dates: start: 20120312
  2. TELAPREVIR [Suspect]
     Indication: HEPATITIS C
     Route: 048
  3. PEGASYS [Suspect]
     Indication: HEPATITIS C
     Dosage: LAST DOSE PRIOR TO EVENT WAS ON 1/APR/2012
     Route: 058
     Dates: start: 20120312
  4. METHAMPHETAMINE HYDROCHLORIDE [Suspect]
     Indication: PRODUCT USED FOR UNKNOWN INDICATION

REACTIONS (1)
  - MYOCARDITIS [None]
